FAERS Safety Report 6151004-2 (Version None)
Quarter: 2009Q2

REPORT INFORMATION
  Report Type: 
  Country: None (occurrence: None)
  Receive Date: 20090410
  Receipt Date: 20090213
  Transmission Date: 20091009
  Serious: No
  Sender: FDA-Public Use
  Company Number: A0769214A

PATIENT
  Age: 65 Year
  Sex: Female

DRUGS (2)
  1. TYKERB [Suspect]
     Indication: DRUG USE FOR UNKNOWN INDICATION
     Dosage: 5TAB PER DAY
     Dates: start: 20090205
  2. CONTRAST MEDIUM [Suspect]
     Dates: start: 20090212, end: 20090212

REACTIONS (1)
  - DIARRHOEA [None]
